FAERS Safety Report 7864775-1 (Version None)
Quarter: 2011Q4

REPORT INFORMATION
  Report Type: 
  Country: None (occurrence: None)
  Receive Date: 20111026
  Receipt Date: 20111012
  Transmission Date: 20120403
  Serious: Yes (Life-Threatening)
  Sender: FDA-Public Use
  Company Number: LTI2011A00186

PATIENT
  Age: 66 Year
  Sex: Male

DRUGS (3)
  1. LEVOTHYROXINE SODIUM [Concomitant]
  2. EZETIMIBE/SIMVASTATIN [Concomitant]
  3. ACTOS [Suspect]
     Indication: TYPE 2 DIABETES MELLITUS
     Dosage: 15 MG (15 MG, 1 IN 1 D) ORAL;
     Dates: start: 20051119, end: 20100128

REACTIONS (3)
  - BLADDER CANCER [None]
  - WEIGHT INCREASED [None]
  - NEUROENDOCRINE CARCINOMA [None]
